FAERS Safety Report 24920249 (Version 1)
Quarter: 2025Q1

REPORT INFORMATION
  Report Type: Report from Study
  Country: US (occurrence: US)
  Receive Date: 20250204
  Receipt Date: 20250204
  Transmission Date: 20250409
  Serious: No
  Sender: EXELIXIS
  Company Number: US-EXELIXIS-CABO-24073404

PATIENT
  Sex: Male

DRUGS (12)
  1. CABOMETYX [Suspect]
     Active Substance: CABOZANTINIB S-MALATE
     Indication: Renal cell carcinoma
     Dosage: 60 MG, QD
     Dates: start: 20231121
  2. CABOMETYX [Suspect]
     Active Substance: CABOZANTINIB S-MALATE
     Dosage: 60 MG, QD
  3. MORPHINE [Concomitant]
     Active Substance: MORPHINE
  4. PERCOCET [Concomitant]
     Active Substance: ACETAMINOPHEN\OXYCODONE HYDROCHLORIDE
  5. SYNTHROID [Concomitant]
     Active Substance: LEVOTHYROXINE SODIUM
  6. LOSARTAN [Concomitant]
     Active Substance: LOSARTAN
  7. TAMSULOSIN [Concomitant]
     Active Substance: TAMSULOSIN
  8. VITAMIN D3 [Concomitant]
     Active Substance: CHOLECALCIFEROL
  9. PREDNISONE [Concomitant]
     Active Substance: PREDNISONE
  10. ZOMETA [Concomitant]
     Active Substance: ZOLEDRONIC ACID
  11. BUPROPION [Concomitant]
     Active Substance: BUPROPION
  12. CALCIUM [Concomitant]
     Active Substance: CALCIUM

REACTIONS (8)
  - Glossodynia [Not Recovered/Not Resolved]
  - Diarrhoea [Not Recovered/Not Resolved]
  - Rash [Recovering/Resolving]
  - Insomnia [Recovering/Resolving]
  - Blood glucose increased [Recovering/Resolving]
  - Dry mouth [Not Recovered/Not Resolved]
  - Nausea [Not Recovered/Not Resolved]
  - Constipation [Not Recovered/Not Resolved]
